FAERS Safety Report 10399018 (Version 1)
Quarter: 2014Q3

REPORT INFORMATION
  Report Type: Spontaneous
  Country: FR (occurrence: FR)
  Receive Date: 20140821
  Receipt Date: 20140821
  Transmission Date: 20150326
  Serious: Yes (Hospitalization)
  Sender: FDA-Public Use
  Company Number: FR-SA-2014SA109852

PATIENT
  Age: 85 Year
  Sex: Female

DRUGS (9)
  1. ESIDREX [Suspect]
     Active Substance: HYDROCHLOROTHIAZIDE
     Indication: PRODUCT USED FOR UNKNOWN INDICATION
     Route: 048
     Dates: start: 20140306, end: 20140503
  2. LASILIX SPECIAL [Suspect]
     Active Substance: FUROSEMIDE
     Indication: PRODUCT USED FOR UNKNOWN INDICATION
     Dosage: DOSE:AT A LOWER DOSE
     Route: 065
  3. ZYLORIC [Concomitant]
     Active Substance: ALLOPURINOL
     Route: 048
  4. LASILIX SPECIAL [Suspect]
     Active Substance: FUROSEMIDE
     Indication: PRODUCT USED FOR UNKNOWN INDICATION
     Route: 048
     Dates: start: 20140306, end: 20140503
  5. CARDENSIEL [Concomitant]
     Active Substance: BISOPROLOL FUMARATE
     Route: 048
  6. RAMIPRIL. [Concomitant]
     Active Substance: RAMIPRIL
  7. IMOVANE [Concomitant]
     Active Substance: ZOPICLONE
     Route: 048
     Dates: start: 20140306
  8. PREVISCAN [Concomitant]
     Active Substance: FLUINDIONE
     Route: 048
  9. PARACETAMOL [Concomitant]
     Active Substance: ACETAMINOPHEN
     Route: 048

REACTIONS (4)
  - Fatigue [Recovered/Resolved]
  - Hypokalaemia [Recovered/Resolved]
  - General physical health deterioration [Recovered/Resolved]
  - Hyponatraemia [Recovered/Resolved]

NARRATIVE: CASE EVENT DATE: 20140503
